FAERS Safety Report 10750625 (Version 1)
Quarter: 2015Q1

REPORT INFORMATION
  Report Type: Spontaneous
  Country: US (occurrence: None)
  Receive Date: 20150126
  Receipt Date: 20150126
  Transmission Date: 20150721
  Serious: Yes (Death)
  Sender: FDA-Public Use
  Company Number: MC201300132

PATIENT
  Age: 65 Year
  Sex: Male

DRUGS (1)
  1. ANGIOMAX [Suspect]
     Active Substance: BIVALIRUDIN
     Indication: OFF LABEL USE
     Dosage: NOT OTHERWISE SPECIFIED
     Route: 040
     Dates: start: 20130307, end: 20130307

REACTIONS (2)
  - Unresponsive to stimuli [None]
  - Thrombosis in device [None]

NARRATIVE: CASE EVENT DATE: 20130307
